FAERS Safety Report 15545541 (Version 1)
Quarter: 2018Q4

REPORT INFORMATION
  Report Type: Spontaneous
  Country: MX (occurrence: MX)
  Receive Date: 20181023
  Receipt Date: 20181023
  Transmission Date: 20190205
  Serious: Yes (Disabling)
  Sender: FDA-Public Use
  Company Number: None

PATIENT
  Sex: Female
  Weight: 6 kg

DRUGS (2)
  1. VALPROIC ACID. [Concomitant]
     Active Substance: VALPROIC ACID
  2. PREGABALIN. [Suspect]
     Active Substance: PREGABALIN
     Dosage: ?          QUANTITY:1 CAPSULE(S);?
     Route: 048

REACTIONS (9)
  - Visual impairment [None]
  - Vision blurred [None]
  - Throat irritation [None]
  - Peripheral swelling [None]
  - Back pain [None]
  - Libido decreased [None]
  - Myalgia [None]
  - Musculoskeletal stiffness [None]
  - Arrhythmia [None]
